FAERS Safety Report 5311400-X (Version None)
Quarter: 2007Q2

REPORT INFORMATION
  Report Type: 
  Country: None (occurrence: None)
  Receive Date: 20070430
  Receipt Date: 20070419
  Transmission Date: 20071010
  Serious: Yes (Hospitalization)
  Sender: FDA-Public Use
  Company Number: FR-AVENTIS-200711401FR

PATIENT
  Age: 82 Year
  Sex: Female

DRUGS (6)
  1. LASILIX                            /00032601/ [Suspect]
     Route: 048
  2. CORDARONE [Suspect]
     Route: 048
  3. ALLOPURINOL [Suspect]
     Route: 048
  4. HEMIGOXINE NATIVELLE [Suspect]
     Route: 048
  5. ALDACTONE [Suspect]
     Route: 048
  6. COZAAR [Suspect]
     Route: 048

REACTIONS (2)
  - FALL [None]
  - MALAISE [None]
